FAERS Safety Report 15409557 (Version 1)
Quarter: 2018Q3

REPORT INFORMATION
  Report Type: Spontaneous
  Country: CA (occurrence: CA)
  Receive Date: 20180920
  Receipt Date: 20180920
  Transmission Date: 20181010
  Serious: Yes (Death)
  Sender: FDA-Public Use
  Company Number: CA-ACTELION-A-NJ2018-178728

PATIENT
  Age: 34 Year
  Sex: Female
  Weight: 41.36 kg

DRUGS (1)
  1. CARIPUL [Suspect]
     Active Substance: EPOPROSTENOL
     Indication: PULMONARY ARTERIAL HYPERTENSION
     Dosage: 4500 NG, UNK
     Route: 042
     Dates: start: 20180525

REACTIONS (1)
  - Accident [Fatal]

NARRATIVE: CASE EVENT DATE: 201809
